FAERS Safety Report 12263965 (Version 3)
Quarter: 2016Q2

REPORT INFORMATION
  Report Type: Spontaneous
  Country: FR (occurrence: FR)
  Receive Date: 20160413
  Receipt Date: 20160428
  Transmission Date: 20160815
  Serious: Yes (Hospitalization)
  Sender: FDA-Public Use
  Company Number: FR-GILEAD-2016-0198869

PATIENT
  Age: 5 Year
  Sex: Male

DRUGS (1)
  1. VIREAD [Suspect]
     Active Substance: TENOFOVIR DISOPROXIL FUMARATE
     Indication: PRODUCT USED FOR UNKNOWN INDICATION
     Dosage: 245 MG, ONCE
     Route: 048

REACTIONS (5)
  - Vomiting [Recovered/Resolved]
  - Toxicity to various agents [Recovered/Resolved]
  - Accidental exposure to product by child [Recovered/Resolved]
  - Vertigo [Recovered/Resolved]
  - Abdominal pain upper [Recovered/Resolved]
